FAERS Safety Report 20953913 (Version 2)
Quarter: 2022Q3

REPORT INFORMATION
  Report Type: Report from Study
  Country: AE (occurrence: AE)
  Receive Date: 20220614
  Receipt Date: 20220804
  Transmission Date: 20221027
  Serious: Yes (Hospitalization)
  Sender: FDA-Public Use
  Company Number: AE-ABBVIE-22K-166-4428187-00

PATIENT
  Age: 46 Year

DRUGS (2)
  1. RINVOQ [Suspect]
     Active Substance: UPADACITINIB
     Indication: Rheumatoid arthritis
     Route: 048
     Dates: end: 20220517
  2. ABX [Concomitant]
     Indication: Product used for unknown indication
     Route: 042

REACTIONS (2)
  - Tumour excision [Recovered/Resolved]
  - Post procedural fever [Recovering/Resolving]

NARRATIVE: CASE EVENT DATE: 20220518
